FAERS Safety Report 6294770-8 (Version None)
Quarter: 2009Q3

REPORT INFORMATION
  Report Type: 
  Country: None (occurrence: None)
  Receive Date: 20090731
  Receipt Date: 20090731
  Transmission Date: 20100115
  Serious: No
  Sender: FDA-Public Use
  Company Number: None

PATIENT
  Age: 58 Year
  Sex: Female
  Weight: 73.9363 kg

DRUGS (2)
  1. LEVAQUIN [Suspect]
     Indication: SINUSITIS
     Dosage: 1 TABLET DAILY PO
     Route: 048
     Dates: start: 20070904, end: 20070925
  2. CIPRO [Suspect]
     Indication: SINUSITIS
     Dosage: 1 TABLET 2 TIMES DAILY PO
     Route: 048
     Dates: start: 20080118, end: 20080128

REACTIONS (3)
  - ROTATOR CUFF SYNDROME [None]
  - TENDON PAIN [None]
  - TENDONITIS [None]
